FAERS Safety Report 8409731-X (Version None)
Quarter: 2012Q2

REPORT INFORMATION
  Report Type: 
  Country: None (occurrence: None)
  Receive Date: 20120529
  Receipt Date: 20120522
  Transmission Date: 20120825
  Serious: Yes (Hospitalization, Disabling)
  Sender: FDA-Public Use
  Company Number: 2012SP003425

PATIENT
  Age: 26 Year
  Sex: Female
  Weight: 72.5755 kg

DRUGS (1)
  1. NUVARING [Suspect]
     Indication: CONTRACEPTION
     Dates: start: 20050923, end: 20100801

REACTIONS (13)
  - DEEP VEIN THROMBOSIS [None]
  - URINARY TRACT INFECTION [None]
  - PANCREATITIS [None]
  - BASAL CELL CARCINOMA [None]
  - PULMONARY EMBOLISM [None]
  - MULTIPLE INJURIES [None]
  - PAIN [None]
  - PANIC DISORDER [None]
  - MUSCLE STRAIN [None]
  - ELECTROLYTE IMBALANCE [None]
  - NECK PAIN [None]
  - OEDEMA PERIPHERAL [None]
  - HYPOKALAEMIA [None]
